FAERS Safety Report 11611863 (Version 1)
Quarter: 2015Q4

REPORT INFORMATION
  Report Type: Spontaneous
  Country: US (occurrence: US)
  Receive Date: 20151008
  Receipt Date: 20151008
  Transmission Date: 20160304
  Serious: Yes (Other)
  Sender: FDA-Public Use
  Company Number: US-PFIZER INC-2015333109

PATIENT
  Sex: Female

DRUGS (1)
  1. HALCION [Suspect]
     Active Substance: TRIAZOLAM
     Indication: INSOMNIA
     Dosage: UNK

REACTIONS (3)
  - Social problem [Recovered/Resolved]
  - Suicide attempt [Recovered/Resolved]
  - Amnesia [Recovering/Resolving]

NARRATIVE: CASE EVENT DATE: 20150918
